FAERS Safety Report 21911455 (Version 1)
Quarter: 2023Q1

REPORT INFORMATION
  Report Type: Spontaneous
  Country: US (occurrence: US)
  Receive Date: 20230125
  Receipt Date: 20230125
  Transmission Date: 20230418
  Serious: No
  Sender: FDA-Public Use
  Company Number: US-ALLERGAN-2222118US

PATIENT
  Sex: Female

DRUGS (4)
  1. BOTOX [Suspect]
     Active Substance: ONABOTULINUMTOXINA
     Indication: Abdominal pain upper
     Dosage: 20 UNITS, SINGLE
  2. COVID-19 VACCINE [Concomitant]
     Indication: COVID-19 immunisation
     Dosage: PFIZER FIRST DOSE
     Route: 030
  3. COVID-19 VACCINE [Concomitant]
     Dosage: PFIZER SECOND DOSE
     Route: 030
  4. COVID-19 VACCINE [Concomitant]
     Dosage: PFIZER THIRD BOOSTER
     Route: 030

REACTIONS (2)
  - Off label use [Unknown]
  - Drug ineffective for unapproved indication [Unknown]
